FAERS Safety Report 10076885 (Version 2)
Quarter: 2014Q2

REPORT INFORMATION
  Report Type: Spontaneous
  Country: AU (occurrence: None)
  Receive Date: 20140410
  Receipt Date: 20140421
  Transmission Date: 20141212
  Serious: Yes (Hospitalization, Other)
  Sender: FDA-Public Use
  Company Number: AUR-APL-2014-04278

PATIENT
  Age: 73 Year
  Sex: Female

DRUGS (10)
  1. ALENDRONIC ACID [Suspect]
     Indication: PRODUCT USED FOR UNKNOWN INDICATION
  2. ESOMEPRAZOLE [Suspect]
     Indication: PRODUCT USED FOR UNKNOWN INDICATION
  3. LEKOVIT CA [Suspect]
     Indication: PRODUCT USED FOR UNKNOWN INDICATION
  4. CANDESARTAN CILEXETIL (CANDESARTAN CILEXETIL) [Concomitant]
  5. DOTHIEPIN (DOSULEPIN) [Concomitant]
  6. LERCANIDIPINE (LERCANIDIPINE) [Concomitant]
  7. FOLIC ACID (FOLIC ACID) [Concomitant]
  8. FUROSEMIDE (FUROSEMIDE) [Concomitant]
  9. WARFARIN (WARFARIN) [Concomitant]
  10. FLECAINIDE (FLECAINIDE) [Concomitant]

REACTIONS (1)
  - Atypical femur fracture [None]
